FAERS Safety Report 5995045-4 (Version None)
Quarter: 2008Q4

REPORT INFORMATION
  Report Type: 
  Country: None (occurrence: None)
  Receive Date: 20081212
  Receipt Date: 20080923
  Transmission Date: 20090506
  Serious: No
  Sender: FDA-Public Use
  Company Number: US-ABBOTT-08P-163-0477876-00

PATIENT
  Sex: Female

DRUGS (6)
  1. HUMIRA [Suspect]
     Indication: RHEUMATOID ARTHRITIS
     Dates: start: 20080716
  2. HUMIRA [Suspect]
  3. PREDNISONE TAB [Concomitant]
     Indication: DRUG USE FOR UNKNOWN INDICATION
  4. AMOXICILLIN [Concomitant]
     Indication: DENTAL DISORDER PROPHYLAXIS
     Dosage: 4 - 500MG TABLETS ONE TIME
     Route: 048
     Dates: start: 20080801, end: 20080801
  5. ALBUTEROL SULFATE [Concomitant]
     Indication: DRUG USE FOR UNKNOWN INDICATION
     Route: 055
  6. TIOTROPIUM BROMIDE [Concomitant]
     Indication: DRUG USE FOR UNKNOWN INDICATION
     Route: 055

REACTIONS (3)
  - COUGH [None]
  - NASOPHARYNGITIS [None]
  - RESPIRATORY TRACT CONGESTION [None]
